FAERS Safety Report 8489229-3 (Version None)
Quarter: 2012Q2

REPORT INFORMATION
  Report Type: 
  Country: None (occurrence: None)
  Receive Date: 20120628
  Receipt Date: 20120628
  Transmission Date: 20120825
  Serious: Yes (Hospitalization)
  Sender: FDA-Public Use
  Company Number: None

PATIENT
  Sex: Female
  Weight: 55 kg

DRUGS (10)
  1. PROCHLORPERAZINE AND ZOFRAN [Concomitant]
  2. FLUOROURACIL [Suspect]
     Dosage: 6040 MG  96 HOUR CONTINUOUS INFUSION
  3. ERBITUX [Suspect]
     Dosage: 1160 MG
     Dates: start: 20111003
  4. ERBITUX [Suspect]
     Dosage: 1160 MG
     Dates: start: 20111017
  5. ERBITUX [Suspect]
     Dosage: 1160 MG
     Dates: start: 20111010
  6. REGLAN [Concomitant]
  7. CISPLATIN [Suspect]
     Dosage: 113 MG
  8. IMODIUM [Concomitant]
  9. OXYCODONE HCL [Concomitant]
  10. REMERON [Concomitant]

REACTIONS (6)
  - NAUSEA [None]
  - DIARRHOEA [None]
  - MALNUTRITION [None]
  - VOMITING [None]
  - PREALBUMIN DECREASED [None]
  - LETHARGY [None]
